FAERS Safety Report 22106042 (Version 2)
Quarter: 2023Q1

REPORT INFORMATION
  Report Type: Spontaneous
  Country: US (occurrence: US)
  Receive Date: 20230317
  Receipt Date: 20230317
  Transmission Date: 20230418
  Serious: No
  Sender: FDA-Public Use
  Company Number: US-SANOFI-01523468

PATIENT
  Age: 69 Year
  Sex: Male

DRUGS (2)
  1. INSULIN GLARGINE [Suspect]
     Active Substance: INSULIN GLARGINE
     Dosage: UNK
  2. BASAGLAR [Suspect]
     Active Substance: INSULIN GLARGINE
     Dosage: UNK

REACTIONS (6)
  - Tremor [Unknown]
  - Feeling jittery [Unknown]
  - Skin irritation [Unknown]
  - Dyspnoea [Unknown]
  - Chest discomfort [Unknown]
  - Blood glucose abnormal [Unknown]
